FAERS Safety Report 15173098 (Version 3)
Quarter: 2018Q4

REPORT INFORMATION
  Report Type: Spontaneous
  Country: DZ (occurrence: DZ)
  Receive Date: 20180720
  Receipt Date: 20181203
  Transmission Date: 20190204
  Serious: Yes (Death)
  Sender: FDA-Public Use
  Company Number: DZ-SA-2018SA195855

PATIENT
  Age: 3 Year
  Sex: Male
  Weight: 10 kg

DRUGS (1)
  1. CEREZYME [Suspect]
     Active Substance: IMIGLUCERASE
     Dosage: UNK, UNK
     Route: 041

REACTIONS (1)
  - Haemorrhagic disorder [Fatal]
